FAERS Safety Report 16275853 (Version 1)
Quarter: 2019Q2

REPORT INFORMATION
  Report Type: Spontaneous
  Country: US (occurrence: US)
  Receive Date: 20190504
  Receipt Date: 20190504
  Transmission Date: 20190711
  Serious: Yes (Hospitalization, Disabling)
  Sender: FDA-Public Use
  Company Number: None

PATIENT
  Age: 63 Year
  Sex: Female

DRUGS (1)
  1. FENTANYL. [Suspect]
     Active Substance: FENTANYL
     Route: 062

REACTIONS (5)
  - Nuclear magnetic resonance imaging brain abnormal [None]
  - Anterograde amnesia [None]
  - Intentional product use issue [None]
  - Loss of consciousness [None]
  - Amnestic disorder [None]
